FAERS Safety Report 11026759 (Version 1)
Quarter: 2015Q2

REPORT INFORMATION
  Report Type: Spontaneous
  Country: JP (occurrence: JP)
  Receive Date: 20150414
  Receipt Date: 20150414
  Transmission Date: 20150821
  Serious: Yes (Hospitalization, Other)
  Sender: FDA-Public Use
  Company Number: JP-BRISTOL-MYERS SQUIBB COMPANY-BMS-2015-005084

PATIENT
  Age: 31 Year
  Sex: Male
  Weight: 74 kg

DRUGS (3)
  1. CISPLATIN. [Suspect]
     Active Substance: CISPLATIN
     Indication: ADENOCARCINOMA
     Dosage: 80 MG/M2, QWK
     Route: 041
     Dates: start: 20141027
  2. 5-FU                               /00098801/ [Suspect]
     Active Substance: FLUOROURACIL
     Indication: ADENOCARCINOMA
     Dosage: 800 MG/M2, QWK
     Route: 041
     Dates: start: 20141027, end: 20141210
  3. ERBITUX [Suspect]
     Active Substance: CETUXIMAB
     Indication: ADENOCARCINOMA
     Dosage: 400 MG/M2, QWK
     Route: 041
     Dates: start: 20141027, end: 20141210

REACTIONS (6)
  - Staphylococcus test positive [Unknown]
  - Neutrophil count decreased [Unknown]
  - White blood cell count decreased [Unknown]
  - Pain [Not Recovered/Not Resolved]
  - Nausea [Not Recovered/Not Resolved]
  - Compression fracture [Unknown]

NARRATIVE: CASE EVENT DATE: 2014
